FAERS Safety Report 24825744 (Version 2)
Quarter: 2025Q1

REPORT INFORMATION
  Report Type: Spontaneous
  Country: BR (occurrence: BR)
  Receive Date: 20250109
  Receipt Date: 20250213
  Transmission Date: 20250408
  Serious: Yes (Other)
  Sender: VERTEX
  Company Number: BR-VERTEX PHARMACEUTICALS-2024-018404

PATIENT
  Age: 10 Year
  Sex: Male

DRUGS (9)
  1. TRIKAFTA [Suspect]
     Active Substance: ELEXACAFTOR\IVACAFTOR\TEZACAFTOR
     Indication: Cystic fibrosis
     Route: 048
     Dates: start: 20240211, end: 2024
  2. TRIKAFTA [Suspect]
     Active Substance: ELEXACAFTOR\IVACAFTOR\TEZACAFTOR
     Route: 048
     Dates: start: 20240508, end: 202405
  3. TRIKAFTA [Suspect]
     Active Substance: ELEXACAFTOR\IVACAFTOR\TEZACAFTOR
     Route: 048
     Dates: start: 20240522, end: 2024
  4. TRIKAFTA [Suspect]
     Active Substance: ELEXACAFTOR\IVACAFTOR\TEZACAFTOR
     Route: 048
     Dates: start: 20240612
  5. PANCREATIN [Concomitant]
     Active Substance: PANCRELIPASE
  6. DORNASE ALFA [Concomitant]
     Active Substance: DORNASE ALFA
  7. MOMETASONE [Concomitant]
     Active Substance: MOMETASONE
     Route: 045
  8. VITAMIN K [Concomitant]
     Active Substance: PHYTONADIONE
     Indication: Prothrombin level increased
  9. VITAMIN K [Concomitant]
     Active Substance: PHYTONADIONE
     Indication: Prothrombin time shortened

REACTIONS (5)
  - Gamma-glutamyltransferase increased [Recovered/Resolved]
  - Aspartate aminotransferase increased [Recovered/Resolved]
  - Alanine aminotransferase increased [Recovered/Resolved]
  - Portal fibrosis [Unknown]
  - Gastritis [Unknown]

NARRATIVE: CASE EVENT DATE: 20240220
